FAERS Safety Report 20535683 (Version 2)
Quarter: 2022Q3

REPORT INFORMATION
  Report Type: Spontaneous
  Country: JP (occurrence: JP)
  Receive Date: 20220302
  Receipt Date: 20220720
  Transmission Date: 20221027
  Serious: Yes (Hospitalization)
  Sender: FDA-Public Use
  Company Number: JP-JNJFOC-20211004149

PATIENT
  Age: 79 Year
  Sex: Male
  Weight: 53 kg

DRUGS (2)
  1. ERLEADA [Suspect]
     Active Substance: APALUTAMIDE
     Indication: Prostate cancer metastatic
     Route: 048
     Dates: start: 20210520, end: 2021
  2. ERLEADA [Suspect]
     Active Substance: APALUTAMIDE
     Dosage: DOSE UNKNOWN
     Route: 048
     Dates: start: 2021, end: 2021

REACTIONS (4)
  - Rash erythematous [Recovering/Resolving]
  - Decreased appetite [Recovered/Resolved]
  - Diarrhoea [Recovered/Resolved]
  - Hypokalaemia [Recovered/Resolved]

NARRATIVE: CASE EVENT DATE: 20210101
